FAERS Safety Report 14401273 (Version 1)
Quarter: 2018Q1

REPORT INFORMATION
  Report Type: Spontaneous
  Country: US (occurrence: US)
  Receive Date: 20180114
  Receipt Date: 20180114
  Transmission Date: 20180509
  Serious: No
  Sender: FDA-Public Use
  Company Number: None

PATIENT
  Age: 37 Year
  Sex: Female

DRUGS (1)
  1. TOBRAMYCIN 300MG/5ML SANDOZ [Suspect]
     Active Substance: TOBRAMYCIN
     Indication: BRONCHIECTASIS
     Dosage: 300MG TWICE DAILY NEBULIZER
     Dates: start: 20171219, end: 20171231

REACTIONS (1)
  - Migraine [None]

NARRATIVE: CASE EVENT DATE: 20171219
